FAERS Safety Report 5196353-X (Version None)
Quarter: 2006Q4

REPORT INFORMATION
  Report Type: 
  Country: None (occurrence: None)
  Receive Date: 20061222
  Receipt Date: 20061208
  Transmission Date: 20070319
  Serious: Yes (Hospitalization, Disabling)
  Sender: FDA-Public Use
  Company Number: 2006113325

PATIENT
  Age: 62 Year
  Sex: Female
  Weight: 80 kg

DRUGS (1)
  1. AROMASIN [Suspect]
     Indication: BREAST CANCER
     Dosage: 25 MG (25 MG, 1 IN D), ORAL
     Route: 048
     Dates: start: 20000101, end: 20060920

REACTIONS (3)
  - BONE DISORDER [None]
  - IMPAIRED HEALING [None]
  - LOWER LIMB FRACTURE [None]
